FAERS Safety Report 18982594 (Version 3)
Quarter: 2021Q2

REPORT INFORMATION
  Report Type: Report from Study
  Country: US (occurrence: US)
  Receive Date: 20210308
  Receipt Date: 20210420
  Transmission Date: 20210717
  Serious: Yes (Hospitalization)
  Sender: FDA-Public Use
  Company Number: US-JNJFOC-20210301533

PATIENT
  Age: 74 Year
  Sex: Female
  Weight: 52.3 kg

DRUGS (4)
  1. OPSUMIT [Suspect]
     Active Substance: MACITENTAN
     Route: 048
  2. OPSUMIT [Suspect]
     Active Substance: MACITENTAN
     Indication: PULMONARY ARTERIAL HYPERTENSION
     Route: 048
  3. SILDENAFIL CITRATE. [Concomitant]
     Active Substance: SILDENAFIL CITRATE
  4. WARFARIN [Concomitant]
     Active Substance: WARFARIN

REACTIONS (3)
  - Skin ulcer [Unknown]
  - Hospitalisation [Unknown]
  - Limb discomfort [Unknown]

NARRATIVE: CASE EVENT DATE: 20210223
